FAERS Safety Report 6661294-5 (Version None)
Quarter: 2010Q1

REPORT INFORMATION
  Report Type: 
  Country: None (occurrence: None)
  Receive Date: 20100329
  Receipt Date: 20100316
  Transmission Date: 20100710
  Serious: Yes (Hospitalization)
  Sender: FDA-Public Use
  Company Number: 1000011505

PATIENT
  Age: 80 Year
  Sex: Female
  Weight: 91.6266 kg

DRUGS (8)
  1. ESCITALOPRAM [Suspect]
     Indication: MAJOR DEPRESSION
     Dosage: 20 MG, ORAL; 10 MG, ORAL; 15 MG, ORAL
     Route: 048
     Dates: start: 20091228, end: 20100104
  2. ESCITALOPRAM [Suspect]
     Indication: MAJOR DEPRESSION
     Dosage: 20 MG, ORAL; 10 MG, ORAL; 15 MG, ORAL
     Route: 048
     Dates: start: 20100105, end: 20100113
  3. ESCITALOPRAM [Suspect]
     Indication: MAJOR DEPRESSION
     Dosage: 20 MG, ORAL; 10 MG, ORAL; 15 MG, ORAL
     Route: 048
     Dates: start: 20100114, end: 20100118
  4. LISINOPRIL [Concomitant]
  5. CALCIUM [Concomitant]
  6. CENTRUM SILVER (CAPSULES) [Concomitant]
  7. ASPIRIN [Concomitant]
  8. VITAMIN C [Concomitant]

REACTIONS (6)
  - AGITATION [None]
  - ANXIETY [None]
  - DISEASE RECURRENCE [None]
  - DYSPHORIA [None]
  - MAJOR DEPRESSION [None]
  - SUICIDAL IDEATION [None]
